FAERS Safety Report 6504071-8 (Version None)
Quarter: 2009Q4

REPORT INFORMATION
  Report Type: 
  Country: None (occurrence: None)
  Receive Date: 20091216
  Receipt Date: 20091216
  Transmission Date: 20100525
  Serious: Yes (Death)
  Sender: FDA-Public Use
  Company Number: None

PATIENT
  Sex: Male
  Weight: 73.9 kg

DRUGS (1)
  1. IMATINIB MESYLATE [Suspect]
     Indication: METASTATIC MALIGNANT MELANOMA
     Dosage: 400 MG DAILY PO
     Route: 048
     Dates: start: 20090730, end: 20090823

REACTIONS (1)
  - DEATH [None]
